FAERS Safety Report 5039669-X (Version None)
Quarter: 2006Q2

REPORT INFORMATION
  Report Type: 
  Country: None (occurrence: None)
  Receive Date: 20060629
  Receipt Date: 20060525
  Transmission Date: 20061013
  Serious: Yes (Other)
  Sender: FDA-Public Use
  Company Number: US-MERCK-0605USA04770

PATIENT
  Age: 72 Year
  Sex: Female

DRUGS (6)
  1. FOSAMAX [Suspect]
     Indication: OSTEOPENIA
     Route: 048
     Dates: start: 20040101
  2. PLAVIX [Concomitant]
     Route: 065
  3. ZOCOR [Concomitant]
     Route: 048
  4. IMDUR [Concomitant]
     Route: 065
  5. ASPIRIN [Concomitant]
     Route: 065
  6. VASOTEC [Concomitant]
     Route: 048

REACTIONS (2)
  - BONE DENSITY DECREASED [None]
  - MYOCARDIAL INFARCTION [None]
